FAERS Safety Report 21756198 (Version 5)
Quarter: 2025Q2

REPORT INFORMATION
  Report Type: Report from Study
  Country: IN (occurrence: None)
  Receive Date: 20221220
  Receipt Date: 20250421
  Transmission Date: 20250717
  Serious: Yes (Death, Other)
  Sender: INCYTE
  Company Number: IN-002147023-NVSC2022IN191863

PATIENT
  Age: 64 Year

DRUGS (7)
  1. RUXOLITINIB [Suspect]
     Active Substance: RUXOLITINIB
     Indication: Primary myelofibrosis
  2. RUXOLITINIB [Suspect]
     Active Substance: RUXOLITINIB
     Dosage: 5 MG, BID
     Route: 065
  3. RUXOLITINIB [Suspect]
     Active Substance: RUXOLITINIB
     Dosage: 10 MG, BID
     Route: 065
  4. RUXOLITINIB [Suspect]
     Active Substance: RUXOLITINIB
     Dosage: 20 MG, BID
     Route: 065
  5. RUXOLITINIB [Suspect]
     Active Substance: RUXOLITINIB
     Dosage: 15 MG, BID
     Route: 065
  6. RUXOLITINIB [Suspect]
     Active Substance: RUXOLITINIB
     Dosage: 15 MG, BID
     Route: 065
  7. RUXOLITINIB [Suspect]
     Active Substance: RUXOLITINIB
     Dosage: 20 MG, BID
     Route: 065

REACTIONS (7)
  - Dizziness [Unknown]
  - Haemoglobin decreased [Unknown]
  - Platelet count abnormal [Unknown]
  - Pallor [Unknown]
  - Paralysis [Unknown]
  - Ill-defined disorder [Fatal]
  - Somnolence [Unknown]
